FAERS Safety Report 9482264 (Version 1)
Quarter: 2013Q3

REPORT INFORMATION
  Report Type: Spontaneous
  Country: US (occurrence: US)
  Receive Date: 20130828
  Receipt Date: 20130828
  Transmission Date: 20140515
  Serious: No
  Sender: FDA-Public Use
  Company Number: US-B.I. PHARMACEUTICALS,INC./RIDGEFIELD-2013-BI-26288BP

PATIENT
  Age: 67 Year
  Sex: Female
  Weight: 88 kg

DRUGS (11)
  1. SPIRIVA [Suspect]
     Indication: CHRONIC OBSTRUCTIVE PULMONARY DISEASE
     Dosage: 18 MCG
     Route: 055
     Dates: start: 2009
  2. ASPIRIN [Concomitant]
     Dosage: 325 MG
     Route: 048
  3. NITRO [Concomitant]
     Indication: CHEST PAIN
  4. CAPTOPRIL [Concomitant]
     Indication: HYPERTENSION
     Dosage: 6.25 MG
     Route: 048
  5. GABAPENTIN [Concomitant]
     Indication: MUSCLE TWITCHING
     Dosage: 1200 MG
     Route: 048
  6. GABAPENTIN [Concomitant]
     Indication: LIMB DISCOMFORT
  7. PROAIR [Concomitant]
     Indication: CHRONIC OBSTRUCTIVE PULMONARY DISEASE
  8. IMDUR [Concomitant]
     Indication: CORONARY ARTERY DISEASE
     Dosage: 60 MG
     Route: 048
  9. ZOLOFT [Concomitant]
     Indication: HOT FLUSH
     Dosage: 25 MG
     Route: 048
  10. PRILOSEC [Concomitant]
     Indication: GASTROOESOPHAGEAL REFLUX DISEASE
     Dosage: 80 MG
     Route: 048
  11. SYNTHROID [Concomitant]
     Indication: HYPOTHYROIDISM
     Dosage: 0.1 MCG
     Route: 048

REACTIONS (2)
  - Nasopharyngitis [Not Recovered/Not Resolved]
  - Cataract [Recovered/Resolved]
